FAERS Safety Report 10095980 (Version 1)
Quarter: 2014Q2

REPORT INFORMATION
  Report Type: Spontaneous
  Country: US (occurrence: US)
  Receive Date: 20140422
  Receipt Date: 20140422
  Transmission Date: 20141212
  Serious: Yes (Hospitalization)
  Sender: FDA-Public Use
  Company Number: US-GLAXOSMITHKLINE-A1060027A

PATIENT
  Age: 83 Year
  Sex: Male
  Weight: 74.1 kg

DRUGS (22)
  1. VOTRIENT [Suspect]
     Indication: RENAL CANCER
     Dosage: 4TAB PER DAY
     Route: 048
     Dates: start: 20131226, end: 20140130
  2. NIFEDIPINE [Suspect]
     Indication: PRODUCT USED FOR UNKNOWN INDICATION
  3. AMLODIPINE [Concomitant]
  4. CLONIDINE [Concomitant]
  5. SYNTHROID [Concomitant]
  6. PANTOPRAZOLE [Concomitant]
  7. PROVENTIL HFA [Concomitant]
  8. NORVASC [Concomitant]
  9. ASPIRIN [Concomitant]
  10. CALCIUM + MAGNESIUM + ZINC [Concomitant]
  11. COLACE [Concomitant]
  12. CARDURA [Concomitant]
  13. VITAMIN D2 [Concomitant]
  14. LASIX [Concomitant]
  15. FLONASE [Concomitant]
  16. APRESOLINE [Concomitant]
  17. SYNTHROID [Concomitant]
  18. COZAAR [Concomitant]
  19. MULTIVITAMINS [Concomitant]
  20. PROTONIX [Concomitant]
  21. K-DUR [Concomitant]
  22. KLOR-CON [Concomitant]

REACTIONS (16)
  - Pneumonia [Recovering/Resolving]
  - Adrenal gland cancer metastatic [Unknown]
  - Renal cell carcinoma [Unknown]
  - Hypertension [Recovering/Resolving]
  - Influenza [Recovering/Resolving]
  - Bradycardia [Recovering/Resolving]
  - Atrioventricular block second degree [Recovering/Resolving]
  - Proteinuria [Recovering/Resolving]
  - Asthenia [Recovering/Resolving]
  - Fatigue [Recovering/Resolving]
  - Swelling face [Recovering/Resolving]
  - Pain [Recovering/Resolving]
  - Blood creatinine increased [Recovering/Resolving]
  - Normochromic normocytic anaemia [Recovering/Resolving]
  - Blood thyroid stimulating hormone increased [Recovering/Resolving]
  - Oedema [Unknown]
